FAERS Safety Report 18520495 (Version 1)
Quarter: 2020Q4

REPORT INFORMATION
  Report Type: Spontaneous
  Country: US (occurrence: US)
  Receive Date: 20201119
  Receipt Date: 20201119
  Transmission Date: 20210114
  Serious: No
  Sender: FDA-Public Use
  Company Number: US-GW PHARMA-202011USGW03934

PATIENT

DRUGS (3)
  1. EPIDIOLEX [Suspect]
     Active Substance: CANNABIDIOL
     Dosage: UNK (DOSE INCREASED)
     Route: 048
     Dates: start: 202006, end: 2020
  2. EPIDIOLEX [Suspect]
     Active Substance: CANNABIDIOL
     Indication: PRODUCT USED FOR UNKNOWN INDICATION
     Dosage: UNK
     Route: 048
     Dates: end: 202006
  3. EPIDIOLEX [Suspect]
     Active Substance: CANNABIDIOL
     Dosage: UNK (NEW DOSE)
     Route: 048
     Dates: start: 2020

REACTIONS (1)
  - Hypokinesia [Recovering/Resolving]

NARRATIVE: CASE EVENT DATE: 2020
